FAERS Safety Report 22216211 (Version 3)
Quarter: 2023Q2

REPORT INFORMATION
  Report Type: Report from Study
  Country: CO (occurrence: CO)
  Receive Date: 20230417
  Receipt Date: 20230525
  Transmission Date: 20230722
  Serious: Yes (Other)
  Sender: FDA-Public Use
  Company Number: CO-002147023-NVSC2022CO286390

PATIENT
  Sex: Male

DRUGS (1)
  1. BROLUCIZUMAB [Suspect]
     Active Substance: BROLUCIZUMAB
     Indication: Macular degeneration
     Dosage: UNK, QMO (IN THE EYE)
     Route: 047

REACTIONS (6)
  - Tricuspid valve disease [Unknown]
  - Aortic aneurysm [Unknown]
  - Illness [Unknown]
  - Dizziness [Unknown]
  - Hypertension [Unknown]
  - Visual impairment [Unknown]
